FAERS Safety Report 5968810-7 (Version None)
Quarter: 2008Q4

REPORT INFORMATION
  Report Type: 
  Country: None (occurrence: None)
  Receive Date: 20081125
  Receipt Date: 20081125
  Transmission Date: 20090506
  Serious: Yes (Hospitalization)
  Sender: FDA-Public Use
  Company Number: None

PATIENT
  Age: 61 Year
  Sex: Male
  Weight: 112 kg

DRUGS (1)
  1. OXYCODONE HCL [Suspect]
     Indication: PAIN
     Dosage: 5 MG QID PO
     Route: 048
     Dates: start: 20040722, end: 20081115

REACTIONS (1)
  - CONSTIPATION [None]
